FAERS Safety Report 6016291-X (Version None)
Quarter: 2008Q4

REPORT INFORMATION
  Report Type: 
  Country: None (occurrence: None)
  Receive Date: 20081222
  Receipt Date: 20081216
  Transmission Date: 20090506
  Serious: Yes (Congenital Anomaly)
  Sender: FDA-Public Use
  Company Number: GB-TEVA-182630ISR

PATIENT

DRUGS (1)
  1. FLUOXETINE [Suspect]
     Indication: POST VIRAL FATIGUE SYNDROME
     Route: 064

REACTIONS (2)
  - AGITATION NEONATAL [None]
  - TALIPES [None]
